FAERS Safety Report 8148342-0 (Version None)
Quarter: 2012Q1

REPORT INFORMATION
  Report Type: 
  Country: None (occurrence: None)
  Receive Date: 20120218
  Receipt Date: 20111208
  Transmission Date: 20120608
  Serious: Yes (Hospitalization)
  Sender: FDA-Public Use
  Company Number: US-ALLERGAN-1106984US

PATIENT
  Age: 62 Year
  Sex: Female

DRUGS (4)
  1. BOTULINUM TOXIN TYPE A [Suspect]
     Dosage: 195 UNK, UNK
     Dates: start: 20080710, end: 20080710
  2. BOTULINUM TOXIN TYPE A [Suspect]
     Indication: TORTICOLLIS
     Dosage: 313 UNITS, SINGLE
     Route: 030
     Dates: start: 20090513, end: 20090513
  3. BOTULINUM TOXIN TYPE A [Suspect]
     Indication: MUSCLE SPASTICITY
     Dosage: 280 UNK, SINGLE
     Dates: start: 20081022, end: 20081022
  4. BOTULINUM TOXIN TYPE A [Suspect]
     Indication: MUSCLE TIGHTNESS
     Dosage: 398 UNK, UNK
     Route: 030
     Dates: start: 20090211, end: 20090211

REACTIONS (3)
  - SPEECH DISORDER [None]
  - DYSPHAGIA [None]
  - ASTHENIA [None]
